FAERS Safety Report 7900659-8 (Version None)
Quarter: 2011Q4

REPORT INFORMATION
  Report Type: 
  Country: None (occurrence: None)
  Receive Date: 20111108
  Receipt Date: 20111101
  Transmission Date: 20120403
  Serious: Yes (Life-Threatening)
  Sender: FDA-Public Use
  Company Number: NL-CELGENEUS-114-C5013-11110072

PATIENT
  Sex: Male
  Weight: 82 kg

DRUGS (15)
  1. CRESTOR [Concomitant]
     Dosage: 10 MILLIGRAM
     Route: 065
     Dates: start: 20060101
  2. NEULASTA [Concomitant]
     Route: 065
     Dates: start: 20110803
  3. DEXAMETHASONE [Concomitant]
     Dosage: 16 MILLIGRAM
     Route: 065
  4. DOCETAXEL [Suspect]
     Dosage: 118 MILLIGRAM
     Route: 065
     Dates: start: 20111025, end: 20111030
  5. DICLOFENAC SODIUM [Concomitant]
     Route: 065
     Dates: start: 20110901
  6. PREDNISONE [Suspect]
     Indication: PROSTATE CANCER
     Dosage: 10 MILLIGRAM
     Route: 065
     Dates: start: 20110607
  7. LENALIDOMIDE [Suspect]
     Dosage: 20 MILLIGRAM
     Route: 048
     Dates: start: 20111025, end: 20111030
  8. DOCETAXEL [Suspect]
     Indication: PROSTATE CANCER
     Dosage: 156 MILLIGRAM
     Route: 065
     Dates: start: 20110607
  9. ELIGARD [Concomitant]
     Dosage: 3 MILLIMOLE
     Route: 065
     Dates: start: 20100101
  10. LENALIDOMIDE [Suspect]
     Indication: PROSTATE CANCER
     Dosage: 25 MILLIGRAM
     Route: 048
     Dates: start: 20110607
  11. PREDNISONE [Suspect]
     Dosage: 10 MILLIGRAM
     Route: 065
     Dates: start: 20111025, end: 20111030
  12. ASPIRIN [Concomitant]
     Dosage: 80 MILLIGRAM
     Route: 065
     Dates: start: 20110607
  13. ZOMETA [Concomitant]
     Route: 065
  14. ANTITHROMBOTIC AGENTS [Concomitant]
     Route: 065
  15. LANSOPRAZOLE [Concomitant]
     Dosage: 40 MILLIGRAM
     Route: 065
     Dates: start: 20060101

REACTIONS (1)
  - SEPSIS [None]
